FAERS Safety Report 4478250-8 (Version None)
Quarter: 2004Q4

REPORT INFORMATION
  Report Type: 
  Country: None (occurrence: None)
  Receive Date: 20041014
  Receipt Date: 20041008
  Transmission Date: 20050328
  Serious: Yes (Life-Threatening, Hospitalization)
  Sender: FDA-Public Use
  Company Number: A044-002-005214

PATIENT
  Age: 90 Year
  Sex: Female
  Weight: 50 kg

DRUGS (5)
  1. ARICEPT [Suspect]
     Indication: DEMENTIA ALZHEIMER'S TYPE
     Dosage: 10 MG, 1 IN 1 D, ORAL; 5 MG, 1 IN 1 D, ORAL;
     Route: 048
     Dates: start: 20030101, end: 20040801
  2. ARICEPT [Suspect]
     Indication: DEMENTIA ALZHEIMER'S TYPE
     Dosage: 10 MG, 1 IN 1 D, ORAL; 5 MG, 1 IN 1 D, ORAL;
     Route: 048
     Dates: start: 20040915, end: 20040901
  3. ARICEPT [Suspect]
     Indication: DEMENTIA ALZHEIMER'S TYPE
     Dosage: 10 MG, 1 IN 1 D, ORAL; 5 MG, 1 IN 1 D, ORAL;
     Route: 048
     Dates: start: 20040901
  4. EFFEXOR [Concomitant]
  5. METOPROLOL TARTRATE [Concomitant]

REACTIONS (2)
  - ATRIOVENTRICULAR BLOCK COMPLETE [None]
  - CARDIAC ARREST [None]
